FAERS Safety Report 8789828 (Version 2)
Quarter: 2013Q1

REPORT INFORMATION
  Report Type: Spontaneous
  Country: US (occurrence: US)
  Receive Date: 20120917
  Receipt Date: 20130102
  Transmission Date: 20140127
  Serious: Yes (Other)
  Sender: FDA-Public Use
  Company Number: US-ASTRAZENECA-2012SE70707

PATIENT
  Age: 57 Year
  Sex: Female
  Weight: 69.4 kg

DRUGS (14)
  1. NEXIUM [Suspect]
     Route: 048
  2. CRESTOR [Suspect]
     Route: 048
  3. CYMBALTA [Concomitant]
     Route: 048
  4. KEFLEX [Concomitant]
     Route: 048
  5. AMOXICILLIN [Concomitant]
     Route: 048
  6. LOVAZA [Concomitant]
     Route: 048
  7. AMBIEN [Concomitant]
     Route: 048
  8. ALPRAZOLAM [Concomitant]
     Route: 048
  9. ANTARA [Concomitant]
     Route: 048
  10. SKELAXIN [Concomitant]
     Route: 048
  11. LISINOPRIL [Concomitant]
  12. NAPROXEN [Concomitant]
  13. FISH OIL [Concomitant]
  14. CALCIUM [Concomitant]

REACTIONS (12)
  - Bone disorder [Unknown]
  - Intervertebral disc displacement [Unknown]
  - Balance disorder [Unknown]
  - Osteoarthritis [Unknown]
  - Pain [Unknown]
  - Hypertension [Unknown]
  - Osteoarthritis [Unknown]
  - Fatigue [Unknown]
  - Dyspepsia [Unknown]
  - Generalised anxiety disorder [Unknown]
  - Insomnia [Unknown]
  - Depression [Unknown]
